FAERS Safety Report 21950225 (Version 3)
Quarter: 2023Q2

REPORT INFORMATION
  Report Type: Spontaneous
  Country: US (occurrence: US)
  Receive Date: 20230203
  Receipt Date: 20230628
  Transmission Date: 20230722
  Serious: No
  Sender: FDA-Public Use
  Company Number: US-PFIZER INC-2021092521

PATIENT
  Age: 60 Year
  Sex: Female
  Weight: 68.027 kg

DRUGS (1)
  1. PREMARIN [Suspect]
     Active Substance: ESTROGENS, CONJUGATED
     Indication: Hormone therapy
     Dosage: 0.9 MG, DAILY
     Route: 048

REACTIONS (5)
  - Mood swings [Unknown]
  - Palpitations [Unknown]
  - Mitral valve prolapse [Unknown]
  - Cardiac disorder [Unknown]
  - Product dispensing error [Unknown]
